FAERS Safety Report 12253239 (Version 2)
Quarter: 2016Q3

REPORT INFORMATION
  Report Type: Spontaneous
  Country: US (occurrence: US)
  Receive Date: 20160411
  Receipt Date: 20160912
  Transmission Date: 20161109
  Serious: Yes (Hospitalization)
  Sender: FDA-Public Use
  Company Number: US-GLAXOSMITHKLINE-US2016044293

PATIENT
  Age: 74 Year
  Sex: Female

DRUGS (11)
  1. OMEGA-3-ACID ETHYL ESTERS. [Suspect]
     Active Substance: OMEGA-3-ACID ETHYL ESTERS
     Indication: MYOCARDIAL INFARCTION
     Dosage: 2 G, BID
     Route: 048
     Dates: start: 20160201, end: 20160330
  2. AMLODIPINE BESILATE [Concomitant]
     Active Substance: AMLODIPINE BESYLATE
  3. ACYCLOVIR. [Suspect]
     Active Substance: ACYCLOVIR
     Dosage: UNK
     Route: 048
     Dates: start: 201509, end: 201509
  4. LOVAZA [Suspect]
     Active Substance: OMEGA-3-ACID ETHYL ESTERS
     Dosage: UNK
     Dates: start: 201009, end: 201602
  5. LIPITOR [Suspect]
     Active Substance: ATORVASTATIN CALCIUM
  6. NOVOLOG [Concomitant]
     Active Substance: INSULIN ASPART
  7. CARVEDILOL. [Concomitant]
     Active Substance: CARVEDILOL
  8. DIOVAN [Concomitant]
     Active Substance: VALSARTAN
  9. PRAVASTATIN SODIUM. [Concomitant]
     Active Substance: PRAVASTATIN SODIUM
  10. ASPIRIN. [Concomitant]
     Active Substance: ASPIRIN
  11. LANTUS [Concomitant]
     Active Substance: INSULIN GLARGINE

REACTIONS (9)
  - Blood pressure increased [Recovered/Resolved]
  - Product substitution issue [Unknown]
  - Heart rate irregular [Recovered/Resolved]
  - Hypertension [Recovered/Resolved]
  - Erythema [Recovered/Resolved]
  - Pain [Recovered/Resolved]
  - Malaise [Unknown]
  - Therapeutic response changed [Unknown]
  - Drug hypersensitivity [Unknown]

NARRATIVE: CASE EVENT DATE: 201509
